FAERS Safety Report 7253222-9 (Version None)
Quarter: 2011Q1

REPORT INFORMATION
  Report Type: 
  Country: None (occurrence: None)
  Receive Date: 20110129
  Receipt Date: 20100329
  Transmission Date: 20110831
  Serious: No
  Sender: FDA-Public Use
  Company Number: US-ABBOTT-10P-163-0626562-00

PATIENT
  Sex: Male

DRUGS (2)
  1. HUMIRA [Suspect]
     Indication: PSORIASIS
     Route: 058
     Dates: start: 20100101
  2. HUMIRA [Suspect]
     Dosage: AFFECTED LOT NUMBER, BUT EVERYTHING WAS CORRECT IN THE PACKAGING.
     Route: 058
     Dates: start: 20100101, end: 20100101

REACTIONS (2)
  - DRUG INEFFECTIVE [None]
  - PSORIASIS [None]
